FAERS Safety Report 5589612-X (Version None)
Quarter: 2008Q1

REPORT INFORMATION
  Report Type: 
  Country: None (occurrence: None)
  Receive Date: 20080114
  Receipt Date: 20080102
  Transmission Date: 20080703
  Serious: Yes (Hospitalization)
  Sender: FDA-Public Use
  Company Number: A0702802A

PATIENT
  Age: 30 Year
  Sex: Female

DRUGS (2)
  1. PAXIL [Suspect]
     Indication: DRUG USE FOR UNKNOWN INDICATION
  2. MARIJUANA [Concomitant]
     Dates: start: 20071223

REACTIONS (8)
  - ADVERSE EVENT [None]
  - DELIVERY [None]
  - FEELING ABNORMAL [None]
  - HALLUCINATION [None]
  - HOMICIDE [None]
  - INSOMNIA [None]
  - OVERDOSE [None]
  - PHYSICAL ASSAULT [None]
